FAERS Safety Report 11268996 (Version 1)
Quarter: 2015Q3

REPORT INFORMATION
  Report Type: Spontaneous
  Country: US (occurrence: None)
  Receive Date: 20150713
  Receipt Date: 20150713
  Transmission Date: 20151125
  Serious: Yes (Death)
  Sender: FDA-Public Use
  Company Number: None

PATIENT
  Age: 63 Year
  Sex: Male

DRUGS (2)
  1. TEMOZOLOMIDE 20MG [Suspect]
     Active Substance: TEMOZOLOMIDE
     Indication: BRAIN NEOPLASM MALIGNANT
     Dosage: 20MG WITH TWO 100 MG CAPSULE?
     Route: 048
     Dates: start: 20141002
  2. TEMOZOLOMIDE 100MG TEVA PHARMACEUTICALS [Suspect]
     Active Substance: TEMOZOLOMIDE
     Indication: BRAIN NEOPLASM MALIGNANT
     Dosage: 200MG TAKEN WITH ONE 20MG CAPSULE?
     Route: 048
     Dates: start: 20150515

REACTIONS (1)
  - Death [None]

NARRATIVE: CASE EVENT DATE: 20150515
